FAERS Safety Report 5820408-7 (Version None)
Quarter: 2008Q3

REPORT INFORMATION
  Report Type: 
  Country: None (occurrence: None)
  Receive Date: 20080724
  Receipt Date: 20070816
  Transmission Date: 20090109
  Serious: No
  Sender: FDA-Public Use
  Company Number: A0661314A

PATIENT
  Age: 70 Year
  Sex: Male

DRUGS (9)
  1. AVANDIA [Suspect]
     Dosage: 8MG PER DAY
     Route: 048
     Dates: start: 20061001, end: 20070628
  2. LISINOPRIL [Concomitant]
  3. CARDURA [Concomitant]
  4. LIPITOR [Concomitant]
  5. NIASPAN [Concomitant]
  6. COUMADIN [Concomitant]
  7. METFORMIN [Concomitant]
  8. GLIPIZIDE [Concomitant]
  9. FUROSEMIDE [Concomitant]

REACTIONS (2)
  - OEDEMA PERIPHERAL [None]
  - WEIGHT INCREASED [None]
